FAERS Safety Report 5064816-3 (Version None)
Quarter: 2006Q3

REPORT INFORMATION
  Report Type: 
  Country: None (occurrence: None)
  Receive Date: 20060728
  Receipt Date: 20060509
  Transmission Date: 20061208
  Serious: Yes (Other)
  Sender: FDA-Public Use
  Company Number: PHBS2006JP07015

PATIENT
  Age: 53 Year
  Sex: Male
  Weight: 70 kg

DRUGS (6)
  1. SANDIMMUNE [Suspect]
     Indication: BONE MARROW TRANSPLANT
     Dosage: 180 MG/D
     Route: 042
     Dates: start: 20060426
  2. SLOW-K [Concomitant]
     Indication: HYPOKALAEMIA
     Dosage: 2400 MG/D
     Route: 048
     Dates: start: 20060213, end: 20060502
  3. BAKTAR [Concomitant]
     Indication: PNEUMONIA
     Dosage: 960 MG/D
     Route: 048
     Dates: start: 20060414
  4. FUNGUARD [Concomitant]
     Indication: SYSTEMIC MYCOSIS
     Dosage: 150 MG/D
     Route: 041
     Dates: start: 20060421
  5. GASTER D [Concomitant]
     Indication: GASTRITIS
     Dosage: 20 MG/D
     Route: 048
     Dates: start: 20060213
  6. NORVASC [Concomitant]
     Indication: HYPERTENSION
     Dosage: 2.5 MG/D
     Route: 048
     Dates: start: 20060213

REACTIONS (4)
  - ATRIOVENTRICULAR BLOCK FIRST DEGREE [None]
  - ATRIOVENTRICULAR BLOCK SECOND DEGREE [None]
  - BUNDLE BRANCH BLOCK RIGHT [None]
  - HEART RATE DECREASED [None]
